FAERS Safety Report 10152810 (Version 2)
Quarter: 2014Q3

REPORT INFORMATION
  Report Type: Spontaneous
  Country: FR (occurrence: FR)
  Receive Date: 20140505
  Receipt Date: 20140805
  Transmission Date: 20150326
  Serious: Yes (Hospitalization)
  Sender: FDA-Public Use
  Company Number: PHHY2014FR053055

PATIENT
  Age: 59 Year
  Sex: Male

DRUGS (6)
  1. TRILEPTAL [Suspect]
     Active Substance: OXCARBAZEPINE
     Indication: ISCHAEMIC STROKE
     Dosage: 300 MG, UNK
     Dates: start: 201209
  2. GARDENAL//PHENOBARBITAL [Suspect]
     Active Substance: PHENOBARBITAL
     Indication: SUBDURAL HAEMATOMA
     Dosage: 100 MG, UNK
     Route: 048
     Dates: start: 201207
  3. DOLIPRANE [Suspect]
     Active Substance: ACETAMINOPHEN
     Indication: ISCHAEMIC STROKE
     Dosage: UNK UKN, UNK
     Route: 048
     Dates: start: 201209
  4. DEPAKINE [Concomitant]
     Active Substance: VALPROATE SODIUM
     Indication: SUBDURAL HAEMATOMA
     Dosage: UNK UKN, UNK
     Dates: start: 201207, end: 201209
  5. KARDEGIC [Suspect]
     Active Substance: ASPIRIN LYSINE
     Indication: ISCHAEMIC STROKE
     Dosage: 160 MG, UNK
     Route: 048
     Dates: start: 201209
  6. RIVOTRIL [Suspect]
     Active Substance: CLONAZEPAM
     Indication: ISCHAEMIC STROKE
     Dosage: UNK UKN, UNK
     Route: 048
     Dates: start: 201209

REACTIONS (1)
  - Oral lichen planus [Unknown]

NARRATIVE: CASE EVENT DATE: 201212
